FAERS Safety Report 18979946 (Version 1)
Quarter: 2021Q1

REPORT INFORMATION
  Report Type: Spontaneous
  Country: US (occurrence: US)
  Receive Date: 20210305
  Receipt Date: 20210305
  Transmission Date: 20210420
  Serious: Yes (Hospitalization)
  Sender: FDA-Public Use
  Company Number: None

PATIENT
  Age: 44 Year
  Sex: Male

DRUGS (4)
  1. AMPYRA [Concomitant]
     Active Substance: DALFAMPRIDINE
     Dates: start: 20170405
  2. BACLOFEN 10 MG TABLET [Concomitant]
     Active Substance: BACLOFEN
  3. GILENYA [Suspect]
     Active Substance: FINGOLIMOD HYDROCHLORIDE
     Indication: MULTIPLE SCLEROSIS
     Route: 048
     Dates: start: 20150429
  4. VITAMIN D 50000 UNITS CAPSULE [Concomitant]

REACTIONS (2)
  - Condition aggravated [None]
  - Fall [None]

NARRATIVE: CASE EVENT DATE: 20201209
